FAERS Safety Report 17215725 (Version 1)
Quarter: 2019Q4

REPORT INFORMATION
  Report Type: Spontaneous
  Country: NL (occurrence: NL)
  Receive Date: 20191230
  Receipt Date: 20191230
  Transmission Date: 20200122
  Serious: Yes (Hospitalization)
  Sender: FDA-Public Use
  Company Number: NL-MYLANLABS-2019M1130219

PATIENT
  Age: 21 Year
  Sex: Female
  Weight: 123 kg

DRUGS (6)
  1. IBUPROFEN. [Concomitant]
     Active Substance: IBUPROFEN
     Dosage: 400 MILLIGRAM, Q8H, 3 MAAL PER DAG 1 TABLET
     Route: 048
     Dates: start: 20131024
  2. MIRTAZAPINE. [Suspect]
     Active Substance: MIRTAZAPINE
     Indication: DEPRESSION
     Dosage: 1 DOSAGE FORM, QD, 1X PER DAG 0,5 TABLET
     Route: 048
     Dates: start: 20190808, end: 201908
  3. NAPROXEN. [Concomitant]
     Active Substance: NAPROXEN
     Dosage: 500 MILLIGRAM, BID, ZO NODIG MAXIMAAL 2 X PER DAG 1 TABLET
     Route: 048
     Dates: start: 20140813
  4. MIDAZOLAM [Concomitant]
     Active Substance: MIDAZOLAM HYDROCHLORIDE
     Dosage: ZO NODIG 1 KEER 4 PUFJES (2 IN ELK NEUSGAT)
     Route: 045
     Dates: start: 20190812
  5. LEVETIRACETAM. [Concomitant]
     Active Substance: LEVETIRACETAM
     Dosage: 500 MILLIGRAM, BID, 2 X PER DAG 1 TABLET
     Route: 048
     Dates: start: 20190815
  6. IBUPROFEN. [Concomitant]
     Active Substance: IBUPROFEN
     Dosage: 200 MILLIGRAM, Q8H, 3 MAAL PER DAG 1 TABLET
     Route: 048
     Dates: start: 20190515

REACTIONS (1)
  - Epilepsy [Recovering/Resolving]

NARRATIVE: CASE EVENT DATE: 201908
